FAERS Safety Report 15140173 (Version 1)
Quarter: 2018Q3

REPORT INFORMATION
  Report Type: Spontaneous
  Country: NL (occurrence: NL)
  Receive Date: 20180713
  Receipt Date: 20180713
  Transmission Date: 20181010
  Serious: Yes (Other)
  Sender: FDA-Public Use
  Company Number: NL-ASTRAZENECA-2018SE86471

PATIENT
  Age: 81 Year
  Sex: Female

DRUGS (9)
  1. ROSUVASTATIN. [Suspect]
     Active Substance: ROSUVASTATIN
     Route: 048
     Dates: start: 201805
  2. PANTOPRAZOLE [Suspect]
     Active Substance: PANTOPRAZOLE
     Route: 065
  3. LOSARTAN POTASSIUM. [Suspect]
     Active Substance: LOSARTAN POTASSIUM
     Dosage: UNK
     Route: 048
     Dates: start: 2016
  4. ZOCOR [Suspect]
     Active Substance: SIMVASTATIN
     Indication: BLOOD CHOLESTEROL
     Dosage: 20.0MG UNKNOWN
     Route: 048
     Dates: start: 2007
  5. METOPROLOL. [Suspect]
     Active Substance: METOPROLOL
     Route: 065
  6. ATORVASTATIN [Suspect]
     Active Substance: ATORVASTATIN
     Route: 065
  7. SIMVASTATIN. [Suspect]
     Active Substance: SIMVASTATIN
     Route: 065
  8. ZOCOR [Suspect]
     Active Substance: SIMVASTATIN
     Indication: BLOOD CHOLESTEROL
     Dosage: 20.0MG UNKNOWN
     Route: 048
     Dates: start: 20180618
  9. ACETYLSALICYLIC ACID [Suspect]
     Active Substance: ASPIRIN
     Dosage: UNK
     Route: 065

REACTIONS (5)
  - Pruritus [Recovering/Resolving]
  - Product physical issue [Unknown]
  - Angioplasty [Unknown]
  - Adverse event [Unknown]
  - Rash [Unknown]

NARRATIVE: CASE EVENT DATE: 2017
